FAERS Safety Report 8143011 (Version 8)
Quarter: 2013Q1

REPORT INFORMATION
  Report Type: Spontaneous
  Country: US (occurrence: US)
  Receive Date: 20110919
  Receipt Date: 20130308
  Transmission Date: 20140127
  Serious: Yes (Other)
  Sender: FDA-Public Use
  Company Number: US-ASTRAZENECA-2011SE54474

PATIENT
  Age: 58 Year
  Sex: Female
  Weight: 47.2 kg

DRUGS (14)
  1. NEXIUM [Suspect]
     Indication: GASTROOESOPHAGEAL REFLUX DISEASE
     Route: 048
  2. NEXIUM [Suspect]
     Indication: OESOPHAGEAL DISORDER
     Route: 048
  3. NEXIUM [Suspect]
     Indication: GASTROOESOPHAGEAL REFLUX DISEASE
     Route: 048
     Dates: start: 2007
  4. NEXIUM [Suspect]
     Indication: OESOPHAGEAL DISORDER
     Route: 048
     Dates: start: 2007
  5. NEXIUM [Suspect]
     Indication: GASTROOESOPHAGEAL REFLUX DISEASE
     Route: 048
     Dates: start: 201301
  6. NEXIUM [Suspect]
     Indication: OESOPHAGEAL DISORDER
     Route: 048
     Dates: start: 201301
  7. PRILOSEC [Suspect]
     Route: 048
  8. ZOFRAN [Concomitant]
  9. PROTONIX [Concomitant]
  10. GABAPENTIN [Concomitant]
  11. PLAQUENIL [Concomitant]
  12. RIFAMPIN [Concomitant]
  13. PREDNISONE [Concomitant]
  14. VICODIN [Concomitant]

REACTIONS (32)
  - Portal hypertensive gastropathy [Unknown]
  - Oesophageal carcinoma [Unknown]
  - Scleroderma [Unknown]
  - Biliary cirrhosis primary [Unknown]
  - Sternal fracture [Recovering/Resolving]
  - Impaired gastric emptying [Unknown]
  - Malabsorption [Unknown]
  - Dysphagia [Unknown]
  - Throat tightness [Unknown]
  - Pain [Unknown]
  - Regurgitation [Unknown]
  - Eating disorder [Unknown]
  - Cognitive disorder [Unknown]
  - Balance disorder [Unknown]
  - Gastrointestinal stenosis [Unknown]
  - Gastrooesophageal reflux disease [Unknown]
  - Hypertension [Unknown]
  - Food allergy [Unknown]
  - Back disorder [Unknown]
  - Oesophageal stenosis [Not Recovered/Not Resolved]
  - Fall [Unknown]
  - Stress [Unknown]
  - Autoimmune disorder [Unknown]
  - Injury [Unknown]
  - Bone disorder [Unknown]
  - Malaise [Unknown]
  - Nausea [Unknown]
  - Malaise [Unknown]
  - Vomiting [Unknown]
  - Off label use [Unknown]
  - Drug ineffective [Unknown]
  - Drug dose omission [Unknown]
